FAERS Safety Report 4419766-X (Version None)
Quarter: 2004Q3

REPORT INFORMATION
  Report Type: 
  Country: None (occurrence: None)
  Receive Date: 20040804
  Receipt Date: 20040713
  Transmission Date: 20050211
  Serious: Yes (Life-Threatening, Hospitalization)
  Sender: FDA-Public Use
  Company Number: JP_040603281

PATIENT
  Age: 44 Year
  Sex: Male
  Weight: 52 kg

DRUGS (3)
  1. ZYPREXA [Suspect]
     Indication: ADJUSTMENT DISORDER
     Dosage: 5 MG DAY
     Dates: start: 20010625, end: 20040516
  2. MEILAX (ETHYL LOFLAZEPATE) [Concomitant]
  3. NITRAZEPAM [Concomitant]

REACTIONS (11)
  - ADJUSTMENT DISORDER [None]
  - CHEMICAL POISONING [None]
  - CONDITION AGGRAVATED [None]
  - CONVULSION [None]
  - DEPRESSED LEVEL OF CONSCIOUSNESS [None]
  - DRUG ABUSER [None]
  - HEPATITIS B [None]
  - HYPONATRAEMIA [None]
  - RHABDOMYOLYSIS [None]
  - SUICIDE ATTEMPT [None]
  - WATER INTOXICATION [None]
